FAERS Safety Report 9312887 (Version 1)
Quarter: 2013Q2

REPORT INFORMATION
  Report Type: Spontaneous
  Country: US (occurrence: US)
  Receive Date: 20130528
  Receipt Date: 20130528
  Transmission Date: 20140414
  Serious: No
  Sender: FDA-Public Use
  Company Number: US-ASTRAZENECA-2013SE34880

PATIENT
  Age: 76 Year
  Sex: Male
  Weight: 79.4 kg

DRUGS (4)
  1. NEXIUM [Suspect]
     Indication: GASTROOESOPHAGEAL REFLUX DISEASE
     Route: 048
     Dates: start: 2008
  2. VITAMINS [Concomitant]
  3. ANUCORT-HC [Concomitant]
     Indication: LIMB INJURY
  4. LEVOTHYROXINE [Concomitant]
     Indication: THYROID DISORDER
     Dates: start: 2012

REACTIONS (5)
  - Limb injury [Unknown]
  - Thyroid disorder [Unknown]
  - Barrett^s oesophagus [Unknown]
  - Gastrooesophageal reflux disease [Unknown]
  - Drug ineffective [Unknown]
